FAERS Safety Report 7363214-7 (Version None)
Quarter: 2011Q1

REPORT INFORMATION
  Report Type: 
  Country: None (occurrence: None)
  Receive Date: 20110321
  Receipt Date: 20110311
  Transmission Date: 20110831
  Serious: Yes (Other)
  Sender: FDA-Public Use
  Company Number: JP-ASTELLAS-2011JP001814

PATIENT
  Age: 16 Year
  Sex: Female

DRUGS (7)
  1. FLUDARA [Concomitant]
     Indication: BONE MARROW CONDITIONING REGIMEN
     Dosage: 30 MG/M2, UNKNOWN/D
     Route: 065
     Dates: start: 20100301
  2. FLUDARA [Concomitant]
     Dosage: 30 MG/M2, UNKNOWN/D
     Route: 065
     Dates: start: 20100501
  3. PROGRAF [Suspect]
     Indication: PROPHYLAXIS AGAINST GRAFT VERSUS HOST DISEASE
     Route: 065
  4. L-PAM [Concomitant]
     Dosage: 60 MG/M2, UNKNOWN/D
     Dates: start: 20100501
  5. CYCLOSPORINE [Concomitant]
     Indication: PROPHYLAXIS AGAINST GRAFT VERSUS HOST DISEASE
     Route: 065
  6. METHOTREXATE [Concomitant]
     Indication: PROPHYLAXIS AGAINST GRAFT VERSUS HOST DISEASE
     Route: 065
  7. L-PAM [Concomitant]
     Indication: BONE MARROW CONDITIONING REGIMEN
     Dosage: 60 MG/M2, UNKNOWN/D
     Route: 065
     Dates: start: 20100301

REACTIONS (2)
  - DRUG INEFFECTIVE [None]
  - ACUTE GRAFT VERSUS HOST DISEASE [None]
